FAERS Safety Report 5240656-7 (Version None)
Quarter: 2007Q1

REPORT INFORMATION
  Report Type: 
  Country: None (occurrence: None)
  Receive Date: 20070219
  Receipt Date: 20070206
  Transmission Date: 20070707
  Serious: Yes (Other)
  Sender: FDA-Public Use
  Company Number: 2007GB00249

PATIENT
  Age: 66 Year
  Sex: Female

DRUGS (9)
  1. LIDOCAINE [Suspect]
     Indication: OSTEOARTHRITIS
     Route: 065
     Dates: start: 20070112
  2. KENALOG [Suspect]
     Indication: OSTEOARTHRITIS
     Dates: start: 20070112
  3. ATORVASTATIN [Concomitant]
     Route: 048
  4. BETAHISTINE [Concomitant]
     Route: 048
  5. CHLORPROMAZINE [Concomitant]
     Route: 048
  6. DOSULEPIN [Concomitant]
     Route: 048
  7. LANSOPRAZOLE [Concomitant]
     Route: 048
  8. PROCYCLIDINE HYDROCHLORIDE 2MG TAB [Concomitant]
  9. LORAZEPAM [Concomitant]
     Route: 048

REACTIONS (3)
  - ASTHENIA [None]
  - DIZZINESS [None]
  - MALAISE [None]
